FAERS Safety Report 8555621-1 (Version None)
Quarter: 2012Q3

REPORT INFORMATION
  Report Type: 
  Country: None (occurrence: None)
  Receive Date: 20120731
  Receipt Date: 20120717
  Transmission Date: 20120928
  Serious: Yes (Hospitalization)
  Sender: FDA-Public Use
  Company Number: IE-ELI_LILLY_AND_COMPANY-IE201112006605

PATIENT
  Age: 29 Year
  Sex: Male

DRUGS (2)
  1. OLANZAPINE [Suspect]
     Indication: SCHIZOAFFECTIVE DISORDER
  2. ABILIFY [Concomitant]
     Dosage: 1 MG, UNKNOWN

REACTIONS (9)
  - WEIGHT INCREASED [None]
  - DYSPNOEA [None]
  - INJECTION SITE HAEMORRHAGE [None]
  - HYPOGLYCAEMIA [None]
  - PSYCHOTIC DISORDER DUE TO A GENERAL MEDICAL CONDITION [None]
  - HYPERGLYCAEMIA [None]
  - GAIT DISTURBANCE [None]
  - AGORAPHOBIA [None]
  - ERECTILE DYSFUNCTION [None]
